FAERS Safety Report 24059601 (Version 1)
Quarter: 2024Q3

REPORT INFORMATION
  Report Type: Spontaneous
  Country: GB (occurrence: GB)
  Receive Date: 20240708
  Receipt Date: 20240708
  Transmission Date: 20241016
  Serious: Yes (Other)
  Sender: FERRING
  Company Number: None

PATIENT

DRUGS (7)
  1. PICOLAX (ANHYDROUS CITRIC ACID\MAGNESIUM OXIDE\SODIUM PICOSULFATE) [Suspect]
     Active Substance: ANHYDROUS CITRIC ACID\MAGNESIUM OXIDE\SODIUM PICOSULFATE
     Indication: Bowel preparation
     Dosage: 24-OCT-2023 - 25-JAN-2024
     Route: 048
     Dates: end: 20240125
  2. IVABRADINE [Concomitant]
     Active Substance: IVABRADINE
     Indication: Myocardial infarction
     Dates: start: 2005
  3. NICORANDIL [Concomitant]
     Active Substance: NICORANDIL
     Indication: Myocardial infarction
     Dates: start: 2005
  4. IRON [Concomitant]
     Active Substance: IRON
     Indication: Anaemia
     Dates: start: 2005
  5. ATORVASTATIN [Concomitant]
     Active Substance: ATORVASTATIN
     Indication: Blood cholesterol
     Dates: start: 2005
  6. OMEPRAZOLE [Concomitant]
     Active Substance: OMEPRAZOLE
  7. ASPIRIN [Concomitant]
     Active Substance: ASPIRIN
     Indication: Myocardial infarction
     Dates: start: 2005

REACTIONS (1)
  - Abnormal loss of weight [Not Recovered/Not Resolved]

NARRATIVE: CASE EVENT DATE: 20240125
